FAERS Safety Report 24012803 (Version 2)
Quarter: 2024Q3

REPORT INFORMATION
  Report Type: Spontaneous
  Country: US (occurrence: US)
  Receive Date: 20240626
  Receipt Date: 20240716
  Transmission Date: 20241017
  Serious: Yes (Other)
  Sender: JAZZ
  Company Number: US-JAZZ PHARMACEUTICALS-2024-US-009728

PATIENT
  Age: 39 Year
  Sex: Female

DRUGS (1)
  1. XYREM [Suspect]
     Active Substance: SODIUM OXYBATE
     Indication: Product used for unknown indication
     Dosage: UNK

REACTIONS (4)
  - Depressed level of consciousness [Recovered/Resolved]
  - Incorrect dose administered [Unknown]
  - Accidental overdose [Recovered/Resolved]
  - Nausea [Recovered/Resolved]
